FAERS Safety Report 10038846 (Version 1)
Quarter: 2014Q1

REPORT INFORMATION
  Report Type: Spontaneous
  Country: US (occurrence: None)
  Receive Date: 20140306
  Receipt Date: 20140306
  Transmission Date: 20141002
  Serious: Yes (Other)
  Sender: FDA-Public Use
  Company Number: 163-21880-13070496

PATIENT
  Age: 63 Year
  Sex: Female

DRUGS (7)
  1. REVLIMID (LENALIDOMIDE) (10 MILLIGRAM, CAPSULES) [Suspect]
     Indication: PLASMA CELL MYELOMA
     Route: 048
     Dates: start: 20130409
  2. COREG (CARVEDILOL) [Concomitant]
  3. FUROSEMIDE (FUROSEMIDE) [Concomitant]
  4. PROCHLORPERAZINE (PROCHLORPERAZINE) [Concomitant]
  5. NEXIUM (ESOMEPRAZOLE) [Concomitant]
  6. MULTIVITAMINS (MULTIVITAMINS) [Concomitant]
  7. TYLENOL 8 HOUR (PARACETAMOL) [Concomitant]

REACTIONS (1)
  - Toothache [None]
